FAERS Safety Report 10742286 (Version 1)
Quarter: 2020Q3

REPORT INFORMATION
  Report Type: Spontaneous
  Country: DE (occurrence: US)
  Receive Date: 20150127
  Receipt Date: 20150127
  Transmission Date: 20201105
  Serious: Yes (Death, Hospitalization)
  Sender: FDA-Public Use
  Company Number: DE-BAYER-2015-011744

PATIENT
  Age: 34 Year
  Sex: Female

DRUGS (42)
  1. METHOTREXATE. [Suspect]
     Active Substance: METHOTREXATE
     Dosage: UNK
     Route: 037
     Dates: start: 19960730
  2. DIFLUCAN [Suspect]
     Active Substance: FLUCONAZOLE
     Dosage: UNK
     Route: 048
     Dates: start: 19960730, end: 19960816
  3. BIFITERAL [Suspect]
     Active Substance: LACTULOSE
     Dosage: UNK
     Route: 048
     Dates: start: 19960813, end: 19960813
  4. CLAFORAN [Suspect]
     Active Substance: CEFOTAXIME SODIUM
     Dosage: UNK
     Route: 041
     Dates: start: 19960805, end: 19960809
  5. DIPIDOLOR [Suspect]
     Active Substance: PIRITRAMIDE
     Dosage: UNK
     Route: 041
     Dates: start: 19960816
  6. DOLANTIN [Suspect]
     Active Substance: MEPERIDINE
     Dosage: UNK
     Route: 041
     Dates: start: 19960816, end: 19960816
  7. ISOPTIN [Suspect]
     Active Substance: VERAPAMIL HYDROCHLORIDE
     Dosage: UNK
     Route: 041
     Dates: start: 19960817, end: 19960817
  8. MORPHINE SULFATE. [Suspect]
     Active Substance: MORPHINE SULFATE
     Dosage: UNK
     Route: 041
     Dates: start: 19960808, end: 19960816
  9. ACETAMINOPHEN. [Suspect]
     Active Substance: ACETAMINOPHEN
     Dosage: UNK
     Route: 048
     Dates: start: 19960805, end: 19960811
  10. SUPRARENIN [Suspect]
     Active Substance: EPINEPHRINE
     Dosage: UNK
     Route: 041
     Dates: start: 19960817
  11. TAVEGIL [Suspect]
     Active Substance: CLEMASTINE FUMARATE
     Dosage: UNK
     Route: 041
     Dates: start: 19960816
  12. ZIENAM [Suspect]
     Active Substance: CILASTATIN SODIUM\IMIPENEM
     Dosage: 0.5 MG, UNK
     Route: 041
     Dates: start: 19960816, end: 19960816
  13. GENTAMICIN. [Suspect]
     Active Substance: GENTAMICIN
     Dosage: UNK
     Route: 041
     Dates: start: 19960805, end: 19960811
  14. HUMANALBUMIN [Suspect]
     Active Substance: ALBUMIN HUMAN
     Dosage: UNK
     Route: 041
     Dates: start: 19960816, end: 19960817
  15. LIQUEMIN [Suspect]
     Active Substance: HEPARIN SODIUM
     Dosage: UNK
     Route: 058
     Dates: start: 19960806
  16. VANCOMYCIN [Suspect]
     Active Substance: VANCOMYCIN
     Dosage: UNK
     Route: 041
     Dates: start: 19960811
  17. VITALIPID [Suspect]
     Active Substance: ERGOCALCIFEROL\PHYTONADIONE\RETINOL\TOCOPHEROL
     Dosage: UNK
     Route: 041
     Dates: start: 19960809, end: 19960816
  18. LEUCOMAX [Suspect]
     Active Substance: MOLGRAMOSTIM
     Dosage: 300 ?G, UNK
     Route: 058
     Dates: start: 19960815
  19. AMOXICILLIN AND CLAVULANATE POTASSIUM [Suspect]
     Active Substance: AMOXICILLIN\CLAVULANATE POTASSIUM
     Dosage: UNK
     Route: 041
     Dates: start: 19960807, end: 19960811
  20. OPIUM. [Suspect]
     Active Substance: OPIUM
     Dosage: UNK
     Route: 048
     Dates: start: 19960807, end: 19960818
  21. PASSPERTIN [Suspect]
     Active Substance: METOCLOPRAMIDE HYDROCHLORIDE
     Dosage: UNK
     Route: 041
     Dates: start: 19960804
  22. PSYQUIL [Suspect]
     Active Substance: TRIFLUPROMAZINE HYDROCHLORIDE
     Dosage: UNK
     Route: 041
     Dates: start: 19960816
  23. SOLU?DECORTIN?H [Suspect]
     Active Substance: PREDNISOLONE SODIUM SUCCINATE
     Dosage: UNK
     Route: 041
     Dates: start: 19960817, end: 19960817
  24. HUMAN ACTRAPID [Suspect]
     Active Substance: INSULIN HUMAN
     Dosage: UNK
     Route: 058
     Dates: start: 19960816
  25. ANCOTIL [Suspect]
     Active Substance: FLUCYTOSINE
     Dosage: UNK
     Route: 041
     Dates: start: 19960815
  26. AMPHOTERICIN B. [Suspect]
     Active Substance: AMPHOTERICIN B
     Dosage: UNK
     Route: 041
     Dates: start: 19960816
  27. DEMEROL [Suspect]
     Active Substance: MEPERIDINE HYDROCHLORIDE
  28. ZOFRAN [Suspect]
     Active Substance: ONDANSETRON HYDROCHLORIDE
     Dosage: UNK
     Route: 041
     Dates: start: 19960730, end: 19960809
  29. ANTRA [Suspect]
     Active Substance: OMEPRAZOLE
     Dosage: UNK
     Route: 041
     Dates: start: 19960730
  30. METHOTREXATE. [Suspect]
     Active Substance: METHOTREXATE
     Dosage: UNK
     Route: 042
     Dates: start: 19960802
  31. LASIX [Suspect]
     Active Substance: FUROSEMIDE
     Dosage: UNK
     Route: 048
     Dates: start: 19960814, end: 19960814
  32. IMODIUM [Suspect]
     Active Substance: LOPERAMIDE HYDROCHLORIDE
     Dosage: UNK
     Route: 048
     Dates: start: 19960731, end: 19960816
  33. NOVALGIN (METAMIZOLE SODIUM) [Suspect]
     Active Substance: METAMIZOLE SODIUM
     Dosage: UNK
     Route: 041
     Dates: start: 19960811, end: 19960819
  34. CIPROBAY (CIPROFLOXACIN) [Suspect]
     Active Substance: CIPROFLOXACIN
     Dosage: UNK
     Route: 041
     Dates: start: 19960817, end: 19960817
  35. DOPAMIN [DOPAMINE HYDROCHLORIDE] [Suspect]
     Active Substance: DOPAMINE HYDROCHLORIDE
     Dosage: UNK
     Route: 041
     Dates: start: 19960817
  36. METRONIDAZOLE. [Suspect]
     Active Substance: METRONIDAZOLE
     Dosage: UNK
     Route: 041
     Dates: start: 19960805, end: 19960809
  37. SOBELIN [Suspect]
     Active Substance: CLINDAMYCIN HYDROCHLORIDE
     Dosage: UNK
     Route: 041
     Dates: start: 19960817, end: 19960817
  38. METHOTREXATE. [Suspect]
     Active Substance: METHOTREXATE
     Dosage: UNK
     Route: 042
     Dates: start: 19960730
  39. NEUPOGEN [Suspect]
     Active Substance: FILGRASTIM
     Indication: NEUTROPENIA
     Dosage: UNK
     Dates: start: 19960816, end: 19960817
  40. ALLOPURINOL. [Suspect]
     Active Substance: ALLOPURINOL
     Dosage: UNK
     Route: 048
     Dates: start: 19960729, end: 19960812
  41. DORMICUM (MIDAZOLAM HYDROCHLORIDE) [Suspect]
     Active Substance: MIDAZOLAM HYDROCHLORIDE
     Dosage: UNK
     Route: 041
     Dates: start: 19960818
  42. MERONEM [Suspect]
     Active Substance: MEROPENEM
     Dosage: UNK
     Route: 041
     Dates: start: 19960816

REACTIONS (14)
  - Toxic epidermal necrolysis [Fatal]
  - Stevens-Johnson syndrome [Fatal]
  - Pruritus [None]
  - Hyperglycaemia [None]
  - Circulatory collapse [Fatal]
  - Hypertension [None]
  - Acquired epidermolysis bullosa [Fatal]
  - Blister [Fatal]
  - Shock [Fatal]
  - Pyrexia [None]
  - Pain [None]
  - Fungal infection [None]
  - Lip erosion [Fatal]
  - Rash [Fatal]

NARRATIVE: CASE EVENT DATE: 19960804
